FAERS Safety Report 8775146 (Version 1)
Quarter: 2012Q4

REPORT INFORMATION
  Report Type: Report from Study
  Country: US (occurrence: US)
  Receive Date: 20120910
  Receipt Date: 20120910
  Transmission Date: 20130627
  Serious: Yes (Other)
  Sender: FDA-Public Use
  Company Number: US-US-EMD SERONO, INC.-7158569

PATIENT
  Sex: Male
  Weight: 74 kg

DRUGS (2)
  1. SEROSTIM [(SOMATROPIN (RDNA ORIGIN) FOR INJECTION)] [Suspect]
     Indication: HIV WASTING SYNDROME
     Dates: start: 20101027, end: 201112
  2. SEROSTIM [Suspect]
     Dates: start: 20120824

REACTIONS (2)
  - Carpal tunnel syndrome [Recovered/Resolved]
  - Arthralgia [Unknown]
